FAERS Safety Report 11738731 (Version 6)
Quarter: 2017Q2

REPORT INFORMATION
  Report Type: Spontaneous
  Country: FR (occurrence: FR)
  Receive Date: 20151113
  Receipt Date: 20170621
  Transmission Date: 20170829
  Serious: Yes (Disabling, Congenital Anomaly, Other)
  Sender: FDA-Public Use
  Company Number: FR-ABBVIE-15P-056-1422097-00

PATIENT
  Sex: Male

DRUGS (2)
  1. DEPAKINE [Suspect]
     Active Substance: VALPROATE SODIUM
     Indication: MATERNAL EXPOSURE TIMING UNSPECIFIED
     Route: 064
  2. DEPAKINE [Suspect]
     Active Substance: VALPROATE SODIUM
     Route: 063

REACTIONS (35)
  - Ear infection [Unknown]
  - Exposure during breast feeding [Unknown]
  - Craniocerebral injury [Unknown]
  - Autism spectrum disorder [Unknown]
  - Nipple disorder [Unknown]
  - Fall [Unknown]
  - Congenital oral malformation [Unknown]
  - Refraction disorder [Unknown]
  - Congenital anomaly [Not Recovered/Not Resolved]
  - Dysmorphism [Unknown]
  - Psychomotor retardation [Unknown]
  - Learning disorder [Unknown]
  - Developmental hip dysplasia [Unknown]
  - Speech disorder developmental [Unknown]
  - Cryptorchism [Unknown]
  - Bronchitis [Unknown]
  - Muscle tone disorder [Unknown]
  - Congenital genitourinary abnormality [Unknown]
  - Anxiety [Unknown]
  - Anomaly of external ear congenital [Unknown]
  - Aphasia [Unknown]
  - Developmental delay [Unknown]
  - Fracture of clavicle due to birth trauma [Unknown]
  - Plagiocephaly [Unknown]
  - Hypertelorism of orbit [Unknown]
  - Hearing disability [Unknown]
  - Foetal exposure during pregnancy [Not Recovered/Not Resolved]
  - Foot deformity [Unknown]
  - Communication disorder [Unknown]
  - Abnormal behaviour [Unknown]
  - Haemangioma [Unknown]
  - Haemangioma of skin [Unknown]
  - Umbilical hernia [Unknown]
  - Low set ears [Unknown]
  - Speech disorder [Unknown]

NARRATIVE: CASE EVENT DATE: 2006
